FAERS Safety Report 12219050 (Version 2)
Quarter: 2016Q2

REPORT INFORMATION
  Report Type: Spontaneous
  Country: RU (occurrence: RU)
  Receive Date: 20160329
  Receipt Date: 20160415
  Transmission Date: 20160815
  Serious: Yes (Hospitalization, Other)
  Sender: FDA-Public Use
  Company Number: PHHY2016RU038326

PATIENT
  Age: 63 Year
  Sex: Female

DRUGS (1)
  1. AMOKSIKLAV [Suspect]
     Active Substance: AMOXICILLIN\CLAVULANATE POTASSIUM
     Indication: BRONCHITIS
     Route: 048

REACTIONS (3)
  - Blood pressure increased [Unknown]
  - Visual impairment [Unknown]
  - Loss of consciousness [Unknown]
